FAERS Safety Report 9751613 (Version 2)
Quarter: 2014Q1

REPORT INFORMATION
  Report Type: Spontaneous
  Country: CN (occurrence: CN)
  Receive Date: 20131212
  Receipt Date: 20140114
  Transmission Date: 20141002
  Serious: Yes (Hospitalization, Other)
  Sender: FDA-Public Use
  Company Number: CN-GILEAD-2013-0089698

PATIENT
  Age: 55 Year
  Sex: Female
  Weight: 55 kg

DRUGS (4)
  1. VIREAD [Suspect]
     Indication: ACQUIRED IMMUNODEFICIENCY SYNDROME
     Dosage: UNK UNK, QD
     Route: 048
     Dates: start: 200905, end: 201310
  2. VIREAD [Suspect]
     Dosage: UNK
  3. LAMIVUDINE [Concomitant]
     Indication: ACQUIRED IMMUNODEFICIENCY SYNDROME
     Dosage: UNK, QD
     Dates: start: 200905, end: 201310
  4. LOPINAVIR + RITONAVIR [Concomitant]
     Indication: ACQUIRED IMMUNODEFICIENCY SYNDROME
     Dosage: UNK
     Dates: start: 201103, end: 201310

REACTIONS (5)
  - Face oedema [Recovering/Resolving]
  - Oedema peripheral [Unknown]
  - Blood urea abnormal [Unknown]
  - Blood creatinine abnormal [Recovered/Resolved]
  - Renal impairment [Unknown]
